FAERS Safety Report 8440546-2 (Version None)
Quarter: 2012Q2

REPORT INFORMATION
  Report Type: 
  Country: None (occurrence: None)
  Receive Date: 20120323
  Receipt Date: 20110625
  Transmission Date: 20120825
  Serious: Yes (Other)
  Sender: FDA-Public Use
  Company Number: 163-21880-11063523

PATIENT
  Age: 90 Year
  Sex: Male

DRUGS (3)
  1. REVLIMID [Suspect]
     Indication: MULTIPLE MYELOMA
     Dosage: 2.5 MG, 1 IN 2 D, PO   10MG-5MG, M-W-F, PO   15 MG, 1 IN 1 D, PO
     Route: 048
     Dates: start: 20110601
  2. REVLIMID [Suspect]
     Indication: MULTIPLE MYELOMA
     Dosage: 2.5 MG, 1 IN 2 D, PO   10MG-5MG, M-W-F, PO   15 MG, 1 IN 1 D, PO
     Route: 048
     Dates: start: 20100101
  3. REVLIMID [Suspect]
     Indication: MULTIPLE MYELOMA
     Dosage: 2.5 MG, 1 IN 2 D, PO   10MG-5MG, M-W-F, PO   15 MG, 1 IN 1 D, PO
     Route: 048
     Dates: start: 20090709

REACTIONS (1)
  - THROMBOSIS [None]
